FAERS Safety Report 9097125 (Version 1)
Quarter: 2013Q1

REPORT INFORMATION
  Report Type: Spontaneous
  Country: US (occurrence: US)
  Receive Date: 20130212
  Receipt Date: 20130212
  Transmission Date: 20140127
  Serious: Yes (Hospitalization, Other)
  Sender: FDA-Public Use
  Company Number: US-009507513-1108USA02950

PATIENT
  Sex: Female
  Weight: 60.78 kg

DRUGS (7)
  1. FOSAMAX [Suspect]
     Indication: PROPHYLAXIS
     Dosage: 70 MG, QW
     Route: 048
     Dates: start: 20041201
  2. FOSAMAX [Suspect]
     Indication: OSTEOPOROSIS
  3. PRILOSEC [Concomitant]
     Indication: DYSPEPSIA
     Dates: start: 2000
  4. MK-9278 [Concomitant]
     Dosage: 500 MG, UNK
  5. CALCIUM (UNSPECIFIED) [Concomitant]
     Dosage: 900-1200
  6. PLAQUENIL [Concomitant]
     Indication: SYSTEMIC LUPUS ERYTHEMATOSUS
     Dates: start: 2000
  7. FOSAMAX [Suspect]
     Indication: PROPHYLAXIS
     Dosage: 70 MG, QW
     Route: 048
     Dates: start: 200804, end: 20100407

REACTIONS (31)
  - Femur fracture [Unknown]
  - Lung disorder [Unknown]
  - Coronary artery disease [Unknown]
  - Arrhythmia [Unknown]
  - Cardiac disorder [Unknown]
  - Anaemia postoperative [Unknown]
  - Hyponatraemia [Unknown]
  - Gastrooesophageal reflux disease [Unknown]
  - Pleural effusion [Unknown]
  - Hypertension [Unknown]
  - Cardiac murmur [Unknown]
  - Dyspnoea [Unknown]
  - Fall [Unknown]
  - Cough [Unknown]
  - Aortic stenosis [Unknown]
  - Ventricular extrasystoles [Not Recovered/Not Resolved]
  - Bundle branch block left [Unknown]
  - Fatigue [Unknown]
  - Adverse drug reaction [Unknown]
  - Aortic calcification [Unknown]
  - Tricuspid valve incompetence [Unknown]
  - Atrial flutter [Recovered/Resolved]
  - Chest pain [Unknown]
  - Arteriosclerosis coronary artery [Unknown]
  - Essential hypertension [Unknown]
  - Treatment noncompliance [Unknown]
  - Aortic valve disease [Unknown]
  - Osteoarthritis [Unknown]
  - Cardiac failure congestive [Unknown]
  - Atrial fibrillation [Unknown]
  - Bradycardia [Unknown]
